FAERS Safety Report 26179517 (Version 1)
Quarter: 2025Q4

REPORT INFORMATION
  Report Type: Spontaneous
  Country: US (occurrence: US)
  Receive Date: 20251219
  Receipt Date: 20251219
  Transmission Date: 20260117
  Serious: Yes (Hospitalization)
  Sender: MYLAN
  Company Number: US-MYLANLABS-2025M1106936

PATIENT
  Age: 71 Year
  Sex: Female

DRUGS (4)
  1. PREDNISONE [Suspect]
     Active Substance: PREDNISONE
     Indication: Insulin autoimmune syndrome
     Dosage: UNK, THERAPY COMPLETED
  2. PREDNISONE [Suspect]
     Active Substance: PREDNISONE
     Dosage: UNK, THERAPY COMPLETED
     Route: 065
  3. PREDNISONE [Suspect]
     Active Substance: PREDNISONE
     Dosage: UNK, THERAPY COMPLETED
     Route: 065
  4. PREDNISONE [Suspect]
     Active Substance: PREDNISONE
     Dosage: UNK, THERAPY COMPLETED

REACTIONS (1)
  - Drug ineffective [Unknown]
